FAERS Safety Report 6750012-8 (Version None)
Quarter: 2010Q2

REPORT INFORMATION
  Report Type: 
  Country: None (occurrence: None)
  Receive Date: 20100601
  Receipt Date: 20100521
  Transmission Date: 20101027
  Serious: Yes (Hospitalization)
  Sender: FDA-Public Use
  Company Number: GXKR2010JP05773

PATIENT
  Age: 74 Year
  Sex: Female

DRUGS (4)
  1. CARBAMAZEPINE (NGX) [Suspect]
     Indication: PAIN
     Route: 065
  2. MEXILETINE (NGX) [Suspect]
     Indication: PAIN
     Route: 065
  3. GEFITINIB [Concomitant]
     Indication: ADENOCARCINOMA
     Dosage: UNK
     Route: 065
     Dates: start: 20070101
  4. GEFITINIB [Concomitant]
     Indication: METASTASES TO BONE

REACTIONS (15)
  - COLONOSCOPY [None]
  - DIARRHOEA [None]
  - DRUG RASH WITH EOSINOPHILIA AND SYSTEMIC SYMPTOMS [None]
  - EOSINOPHILIA [None]
  - ERYTHEMA [None]
  - FUNGAL INFECTION [None]
  - HYPOXIA [None]
  - LARGE INTESTINAL ULCER [None]
  - LIVER DISORDER [None]
  - LYMPHOCYTE MORPHOLOGY ABNORMAL [None]
  - OEDEMA PERIPHERAL [None]
  - PLATELET COUNT DECREASED [None]
  - PNEUMONIA CYTOMEGALOVIRAL [None]
  - PYREXIA [None]
  - RASH [None]
